FAERS Safety Report 6648571-9 (Version None)
Quarter: 2010Q1

REPORT INFORMATION
  Report Type: 
  Country: None (occurrence: None)
  Receive Date: 20100324
  Receipt Date: 20100319
  Transmission Date: 20100710
  Serious: Yes (Other)
  Sender: FDA-Public Use
  Company Number: GB-SANOFI-AVENTIS-2010SA016372

PATIENT

DRUGS (1)
  1. CLEXANE [Suspect]

REACTIONS (1)
  - AGRANULOCYTOSIS [None]
